FAERS Safety Report 23729741 (Version 1)
Quarter: 2024Q2

REPORT INFORMATION
  Report Type: Spontaneous
  Country: US (occurrence: US)
  Receive Date: 20240411
  Receipt Date: 20240411
  Transmission Date: 20240715
  Serious: Yes (Other)
  Sender: FDA-Public Use
  Company Number: US-MALLINCKRODT-MNK202402415

PATIENT
  Age: 32 Year
  Sex: Female

DRUGS (4)
  1. NITRIC OXIDE [Suspect]
     Active Substance: NITRIC OXIDE
     Indication: Peripartum cardiomyopathy
     Dosage: UNKNOWN
  2. DOBUTAMINE [Concomitant]
     Active Substance: DOBUTAMINE HYDROCHLORIDE
     Dosage: UNKNOWN
  3. MILRINONE [Concomitant]
     Active Substance: MILRINONE
     Dosage: UNKNOWN
  4. ENOXAPARIN [Concomitant]
     Active Substance: ENOXAPARIN
     Dosage: UNKNOWN

REACTIONS (4)
  - Respiratory failure [Unknown]
  - Renal failure [Unknown]
  - Product use in unapproved indication [Unknown]
  - Product use issue [Unknown]
